FAERS Safety Report 4946421-X (Version None)
Quarter: 2006Q1

REPORT INFORMATION
  Report Type: 
  Country: None (occurrence: None)
  Receive Date: 20060313
  Receipt Date: 20060302
  Transmission Date: 20060701
  Serious: No
  Sender: FDA-Public Use
  Company Number: TPA2006A00376

PATIENT
  Sex: Male

DRUGS (1)
  1. ROZEREM [Suspect]
     Indication: INSOMNIA
     Dosage: 8 MG, QHS, PER ORAL; 8 MG, 2 TABLETS QHS, PER ORAL
     Route: 048

REACTIONS (2)
  - DRUG EFFECT DECREASED [None]
  - INITIAL INSOMNIA [None]
